FAERS Safety Report 19459485 (Version 1)
Quarter: 2021Q2

REPORT INFORMATION
  Report Type: Spontaneous
  Country: CA (occurrence: CA)
  Receive Date: 20210624
  Receipt Date: 20210624
  Transmission Date: 20210717
  Serious: Yes (Hospitalization)
  Sender: FDA-Public Use
  Company Number: CA-PFIZER INC-2019181626

PATIENT
  Age: 60 Year
  Sex: Female

DRUGS (6)
  1. MAGNESIUM ACETATE [Concomitant]
     Active Substance: MAGNESIUM ACETATE
     Dosage: 1 DF
     Dates: start: 2016
  2. ARAVA [Concomitant]
     Active Substance: LEFLUNOMIDE
     Indication: RHEUMATOID ARTHRITIS
     Dosage: 20 MG, 1X/DAY
     Dates: start: 20021220
  3. MAGNESIUM ACETATE [Concomitant]
     Active Substance: MAGNESIUM ACETATE
     Indication: MUSCLE SPASMS
     Dosage: UNK
     Dates: start: 2016
  4. XELJANZ [Suspect]
     Active Substance: TOFACITINIB CITRATE
     Indication: RHEUMATOID ARTHRITIS
     Dosage: 5 MG, 2X/DAY
     Route: 048
     Dates: start: 20141007, end: 2019
  5. XELJANZ [Suspect]
     Active Substance: TOFACITINIB CITRATE
     Dosage: 5 MG, 2X/DAY
     Route: 048
  6. ARAVA [Concomitant]
     Active Substance: LEFLUNOMIDE
     Dosage: 1 DF
     Route: 065
     Dates: start: 20021220

REACTIONS (2)
  - Illness [Unknown]
  - Blood disorder [Not Recovered/Not Resolved]

NARRATIVE: CASE EVENT DATE: 2019
